FAERS Safety Report 18752020 (Version 2)
Quarter: 2021Q1

REPORT INFORMATION
  Report Type: Spontaneous
  Country: CA (occurrence: CA)
  Receive Date: 20210118
  Receipt Date: 20210312
  Transmission Date: 20210419
  Serious: Yes (Other)
  Sender: FDA-Public Use
  Company Number: NVSC2021CA006295

PATIENT
  Age: 45 Year
  Sex: Female

DRUGS (1)
  1. CIPRODEX [Suspect]
     Active Substance: CIPROFLOXACIN HYDROCHLORIDE\DEXAMETHASONE
     Indication: EAR INFECTION
     Dosage: UNK, QID (FOR 7 DAYS)
     Route: 065
     Dates: start: 20200330

REACTIONS (60)
  - Dyspnoea [Unknown]
  - Pain [Unknown]
  - Anxiety [Unknown]
  - Fatigue [Unknown]
  - Mobility decreased [Unknown]
  - Back pain [Unknown]
  - Bursitis [Unknown]
  - Paraesthesia [Unknown]
  - Urinary incontinence [Unknown]
  - Hyperhidrosis [Unknown]
  - Hypoacusis [Unknown]
  - Taste disorder [Unknown]
  - Muscle spasms [Unknown]
  - Influenza [Unknown]
  - Peripheral swelling [Unknown]
  - Bladder disorder [Unknown]
  - Chills [Unknown]
  - Visual impairment [Unknown]
  - Diplopia [Unknown]
  - Depression [Unknown]
  - Crying [Unknown]
  - Nausea [Unknown]
  - Pruritus [Unknown]
  - Rash [Unknown]
  - Dizziness [Unknown]
  - Diarrhoea [Unknown]
  - Mental disorder [Unknown]
  - Weight increased [Unknown]
  - Memory impairment [Unknown]
  - Eye pain [Unknown]
  - Neuropathy peripheral [Unknown]
  - Oropharyngeal pain [Unknown]
  - Hypokinesia [Unknown]
  - Arthralgia [Unknown]
  - Alopecia [Unknown]
  - Muscular weakness [Unknown]
  - Trismus [Unknown]
  - Pelvic pain [Unknown]
  - Joint stiffness [Unknown]
  - Neck pain [Unknown]
  - Vomiting [Unknown]
  - Headache [Unknown]
  - Tendonitis [Unknown]
  - Formication [Unknown]
  - Myalgia [Unknown]
  - Pain in extremity [Unknown]
  - Groin pain [Unknown]
  - Discomfort [Unknown]
  - Musculoskeletal stiffness [Unknown]
  - Insomnia [Unknown]
  - Mental fatigue [Unknown]
  - Dysgeusia [Unknown]
  - Cerebral disorder [Unknown]
  - Deafness [Unknown]
  - Heart rate increased [Unknown]
  - Tendon rupture [Unknown]
  - Asthenia [Unknown]
  - Migraine [Unknown]
  - Ear pain [Unknown]
  - Vision blurred [Unknown]

NARRATIVE: CASE EVENT DATE: 20200723
